FAERS Safety Report 8834395 (Version 1)
Quarter: 2012Q4

REPORT INFORMATION
  Report Type: Spontaneous
  Country: US (occurrence: None)
  Receive Date: 20121010
  Receipt Date: 20121010
  Transmission Date: 20130627
  Serious: Yes (Life-Threatening, Other)
  Sender: FDA-Public Use
  Company Number: None

PATIENT
  Age: 46 Year
  Sex: Female
  Weight: 95.26 kg

DRUGS (2)
  1. BUPROPION HCL [Suspect]
     Indication: DEPRESSION
     Dosage: 150 mg 1/day po
     Route: 048
     Dates: start: 20120921, end: 20121001
  2. BUPROPION HCL [Suspect]
     Indication: ANXIETY
     Dosage: 150 mg 1/day po
     Route: 048
     Dates: start: 20120921, end: 20121001

REACTIONS (6)
  - Insomnia [None]
  - Anxiety [None]
  - Depression [None]
  - Suicidal ideation [None]
  - Product quality issue [None]
  - Product substitution issue [None]
